FAERS Safety Report 5977667-X (Version None)
Quarter: 2008Q4

REPORT INFORMATION
  Report Type: 
  Country: None (occurrence: None)
  Receive Date: 20081201
  Receipt Date: 20081201
  Transmission Date: 20090506
  Serious: No
  Sender: FDA-Public Use
  Company Number: None

PATIENT
  Age: 21 Year
  Sex: Female
  Weight: 47.1741 kg

DRUGS (1)
  1. MIRENA [Suspect]
     Indication: CONTRACEPTION
     Dosage: LOW DOSES?  VAG
     Route: 067
     Dates: start: 20080615, end: 20080813

REACTIONS (5)
  - ANXIETY [None]
  - EMOTIONAL DISORDER [None]
  - HORMONE LEVEL ABNORMAL [None]
  - HYPERTENSION [None]
  - NERVOUSNESS [None]
